FAERS Safety Report 5321733-9 (Version None)
Quarter: 2007Q2

REPORT INFORMATION
  Report Type: 
  Country: None (occurrence: None)
  Receive Date: 20070510
  Receipt Date: 20070502
  Transmission Date: 20071010
  Serious: Yes (Other)
  Sender: FDA-Public Use
  Company Number: US-PFIZER INC-2007035978

PATIENT
  Sex: Female

DRUGS (1)
  1. NEURONTIN [Suspect]
     Indication: NEUROPATHY PERIPHERAL

REACTIONS (3)
  - AMNESIA [None]
  - CARDIAC DISORDER [None]
  - RENAL DISORDER [None]
